FAERS Safety Report 8415476-2 (Version None)
Quarter: 2012Q2

REPORT INFORMATION
  Report Type: 
  Country: None (occurrence: None)
  Receive Date: 20120606
  Receipt Date: 20120601
  Transmission Date: 20120825
  Serious: Yes (Death, Other)
  Sender: FDA-Public Use
  Company Number: PHHY2012SD047610

PATIENT

DRUGS (4)
  1. ETOPOSIDE [Concomitant]
  2. DAUNORUBICIN HCL [Concomitant]
  3. GLEEVEC [Suspect]
     Indication: CHRONIC MYELOID LEUKAEMIA
     Dosage: 100 MG, BID
     Route: 048
  4. CYTARABINE [Concomitant]

REACTIONS (3)
  - PNEUMONIA [None]
  - CHRONIC MYELOID LEUKAEMIA TRANSFORMATION [None]
  - DRUG RESISTANCE [None]
